FAERS Safety Report 4960404-5 (Version None)
Quarter: 2006Q2

REPORT INFORMATION
  Report Type: 
  Country: None (occurrence: None)
  Receive Date: 20060403
  Receipt Date: 20060330
  Transmission Date: 20061013
  Serious: Yes (Death, Hospitalization)
  Sender: FDA-Public Use
  Company Number: PHHO2006ZA05224

PATIENT
  Age: 65 Year
  Sex: Male
  Weight: 60 kg

DRUGS (3)
  1. GLEEVEC [Suspect]
     Indication: CHRONIC MYELOID LEUKAEMIA
     Dosage: 400 MG, QD
     Route: 048
     Dates: start: 20060208
  2. GLEEVEC [Suspect]
     Dosage: 200 MG, QD
     Route: 048
     Dates: end: 20060315
  3. INSULIN [Concomitant]
     Indication: DIABETES MELLITUS INSULIN-DEPENDENT

REACTIONS (5)
  - ANAEMIA [None]
  - DEATH [None]
  - DRUG INEFFECTIVE [None]
  - PULMONARY OEDEMA [None]
  - RESPIRATORY TRACT INFECTION [None]
